FAERS Safety Report 24973603 (Version 2)
Quarter: 2025Q3

REPORT INFORMATION
  Report Type: Report from Study
  Country: US (occurrence: US)
  Receive Date: 20250217
  Receipt Date: 20250811
  Transmission Date: 20251020
  Serious: Yes (Hospitalization)
  Sender: ABBVIE
  Company Number: US-ABBVIE-5841952

PATIENT
  Age: 48 Year
  Sex: Male

DRUGS (1)
  1. SKYRIZI [Suspect]
     Active Substance: RISANKIZUMAB-RZAA
     Indication: Crohn^s disease
     Route: 042
     Dates: start: 20240501

REACTIONS (3)
  - Pyrexia [Recovered/Resolved]
  - Drug ineffective [Not Recovered/Not Resolved]
  - Infection [Unknown]

NARRATIVE: CASE EVENT DATE: 20240101
